FAERS Safety Report 18797888 (Version 7)
Quarter: 2022Q1

REPORT INFORMATION
  Report Type: Report from Study
  Country: SE (occurrence: SE)
  Receive Date: 20210128
  Receipt Date: 20220128
  Transmission Date: 20220423
  Serious: Yes (Other)
  Sender: FDA-Public Use
  Company Number: SE-ABBVIE-20K-150-3591237-00

PATIENT
  Age: 72 Year
  Sex: Male
  Weight: 76 kg

DRUGS (4)
  1. CARBIDOPA\LEVODOPA [Suspect]
     Active Substance: CARBIDOPA\LEVODOPA
     Indication: Parkinson^s disease
     Route: 050
     Dates: start: 20130402
  2. CARBIDOPA\LEVODOPA [Suspect]
     Active Substance: CARBIDOPA\LEVODOPA
     Dosage: CURRENT DOSAGES: MORNING DOSE 11.5ML, CONTINUOUS DOSE 2.7ML/H, EXTRA DOSE 1ML.
     Route: 050
     Dates: start: 20211116
  3. QUETIAPINE [Concomitant]
     Active Substance: QUETIAPINE
     Indication: Hallucination
  4. RIVASTIGMINE [Concomitant]
     Active Substance: RIVASTIGMINE
     Indication: Memory impairment

REACTIONS (13)
  - Intraventricular haemorrhage [Recovered/Resolved with Sequelae]
  - Unintentional medical device removal [Unknown]
  - Embedded device [Recovering/Resolving]
  - Injury [Unknown]
  - Contusion [Unknown]
  - Pain [Unknown]
  - Fall [Recovering/Resolving]
  - Mucosal disorder [Unknown]
  - Stoma site erythema [Not Recovered/Not Resolved]
  - Stoma site discharge [Unknown]
  - Stoma site irritation [Not Recovered/Not Resolved]
  - Device difficult to use [Unknown]
  - Device issue [Unknown]

NARRATIVE: CASE EVENT DATE: 20200901
